FAERS Safety Report 7074095-3 (Version None)
Quarter: 2010Q4

REPORT INFORMATION
  Report Type: 
  Country: None (occurrence: None)
  Receive Date: 20101029
  Receipt Date: 20101020
  Transmission Date: 20110411
  Serious: Yes (Hospitalization, Disabling)
  Sender: FDA-Public Use
  Company Number: FR-JNJFOC-20100300611

PATIENT
  Age: 62 Year
  Sex: Male
  Weight: 77 kg

DRUGS (23)
  1. REMICADE [Suspect]
     Indication: CROHN'S DISEASE
     Dosage: 2ND INFUSION
     Route: 042
  2. REMICADE [Suspect]
     Route: 042
  3. REMICADE [Suspect]
     Route: 042
  4. IMUREL [Suspect]
     Indication: CROHN'S DISEASE
     Route: 042
  5. NEXIUM [Concomitant]
     Indication: ULCER
     Route: 048
  6. SMECTA [Concomitant]
     Indication: DIARRHOEA
     Dosage: DOSE 3 DF DAILY
     Route: 048
  7. PARACETAMOL [Concomitant]
  8. BACTRIM [Concomitant]
  9. INNOHEP [Concomitant]
  10. HUMALOG [Concomitant]
     Indication: DIABETES MELLITUS
     Route: 058
  11. LANTUS [Concomitant]
     Indication: DIABETES MELLITUS
     Dosage: IN THE PM
  12. PERIKABIVEN [Concomitant]
     Indication: PARENTERAL NUTRITION
  13. CERNEVIT-12 [Concomitant]
  14. TRACITRANS [Concomitant]
  15. MEDROL [Concomitant]
     Indication: CROHN'S DISEASE
     Route: 048
  16. MEDROL [Concomitant]
     Route: 048
  17. FLAGYL [Concomitant]
     Indication: DIVERTICULUM
     Route: 048
  18. OFLOCET [Concomitant]
     Indication: DIVERTICULUM
     Route: 048
  19. CLAMOXYL [Concomitant]
     Indication: DIVERTICULUM
     Route: 048
  20. CYMEVAN [Concomitant]
     Indication: CYTOMEGALOVIRUS INFECTION
     Dosage: DOSE WAS 2
     Route: 042
  21. ACTONEL [Concomitant]
     Indication: OSTEOPOROSIS
     Route: 048
  22. CALCIUM WITH VITAMIN D [Concomitant]
     Indication: OSTEOPOROSIS
     Route: 048
  23. SPASFON LYOC [Concomitant]
     Indication: MUSCLE SPASMS
     Route: 048

REACTIONS (10)
  - DEEP VEIN THROMBOSIS [None]
  - GENERAL PHYSICAL HEALTH DETERIORATION [None]
  - HYPOALBUMINAEMIA [None]
  - LYMPHOPENIA [None]
  - OEDEMA PERIPHERAL [None]
  - PNEUMOCYSTIS JIROVECI PNEUMONIA [None]
  - PNEUMONIA [None]
  - PNEUMOTHORAX [None]
  - PULMONARY EMBOLISM [None]
  - RESPIRATORY FAILURE [None]
